FAERS Safety Report 5031301-4 (Version None)
Quarter: 2006Q2

REPORT INFORMATION
  Report Type: 
  Country: None (occurrence: None)
  Receive Date: 20060621
  Receipt Date: 20060619
  Transmission Date: 20061013
  Serious: Yes (Hospitalization)
  Sender: FDA-Public Use
  Company Number: 2006CG01082

PATIENT
  Age: 40 Year
  Sex: Female

DRUGS (10)
  1. DIPRIVAN [Suspect]
     Route: 042
     Dates: start: 20060518, end: 20060518
  2. DIPRIVAN [Suspect]
     Route: 042
     Dates: start: 20060518, end: 20060518
  3. DIPRIVAN [Suspect]
     Route: 042
     Dates: start: 20060518, end: 20060518
  4. SUFENTA [Suspect]
     Route: 042
     Dates: start: 20060518, end: 20060518
  5. SUFENTA [Suspect]
     Route: 042
     Dates: start: 20060518, end: 20060518
  6. SUFENTA [Suspect]
     Route: 042
     Dates: start: 20060518, end: 20060518
  7. HYPNOVEL [Suspect]
     Route: 042
     Dates: start: 20060518, end: 20060528
  8. TRACRIUM [Suspect]
     Route: 042
     Dates: start: 20060518, end: 20060518
  9. BLUE PATENTE [Suspect]
     Route: 058
     Dates: start: 20060518, end: 20060518
  10. ATROPINE [Suspect]
     Route: 042
     Dates: start: 20060518, end: 20060518

REACTIONS (2)
  - RASH ERYTHEMATOUS [None]
  - RESPIRATORY GAS EXCHANGE DISORDER [None]
